FAERS Safety Report 15600864 (Version 2)
Quarter: 2018Q4

REPORT INFORMATION
  Report Type: Spontaneous
  Country: US (occurrence: US)
  Receive Date: 20181109
  Receipt Date: 20181116
  Transmission Date: 20190205
  Serious: No
  Sender: FDA-Public Use
  Company Number: US-BIOGEN-2018BI00654144

PATIENT
  Sex: Female

DRUGS (1)
  1. TYSABRI [Suspect]
     Active Substance: NATALIZUMAB
     Indication: MULTIPLE SCLEROSIS
     Route: 065
     Dates: start: 20060822

REACTIONS (14)
  - Agitation [Unknown]
  - Mobility decreased [Unknown]
  - Product dose omission [Unknown]
  - Influenza like illness [Unknown]
  - Speech disorder [Unknown]
  - Pain [Unknown]
  - Gait disturbance [Unknown]
  - Balance disorder [Unknown]
  - Feeling abnormal [Unknown]
  - Musculoskeletal disorder [Unknown]
  - Cognitive disorder [Unknown]
  - Hangover [Unknown]
  - Spinal pain [Unknown]
  - Muscle spasms [Unknown]
